FAERS Safety Report 8923928 (Version 3)
Quarter: 2013Q1

REPORT INFORMATION
  Report Type: Spontaneous
  Country: US (occurrence: US)
  Receive Date: 20121126
  Receipt Date: 20130314
  Transmission Date: 20140127
  Serious: No
  Sender: FDA-Public Use
  Company Number: US-009507513-1211USA008087

PATIENT
  Age: 67 Year
  Sex: Female
  Weight: 68.27 kg

DRUGS (2)
  1. HYZAAR [Suspect]
     Dosage: 50 MG, UNK
     Route: 048
  2. PRILOSEC [Concomitant]

REACTIONS (1)
  - Heart rate increased [Recovered/Resolved]
